FAERS Safety Report 18336289 (Version 2)
Quarter: 2020Q4

REPORT INFORMATION
  Report Type: Spontaneous
  Country: AR (occurrence: AR)
  Receive Date: 20201001
  Receipt Date: 20201111
  Transmission Date: 20210113
  Serious: Yes (Death, Other)
  Sender: FDA-Public Use
  Company Number: AR-009507513-2009ARG010718

PATIENT
  Age: 70 Year
  Sex: Female

DRUGS (1)
  1. PEMBROLIZUMAB. [Suspect]
     Active Substance: PEMBROLIZUMAB
     Indication: LUNG NEOPLASM MALIGNANT
     Dosage: 200 MG EVERY 21 DAYS
     Dates: start: 2020

REACTIONS (4)
  - Bone marrow disorder [Not Recovered/Not Resolved]
  - Malignant neoplasm progression [Fatal]
  - Haemolytic anaemia [Not Recovered/Not Resolved]
  - Autoimmune anaemia [Not Recovered/Not Resolved]

NARRATIVE: CASE EVENT DATE: 2020
